FAERS Safety Report 19648631 (Version 3)
Quarter: 2021Q3

REPORT INFORMATION
  Report Type: Spontaneous
  Country: US (occurrence: US)
  Receive Date: 20210803
  Receipt Date: 20210916
  Transmission Date: 20211014
  Serious: No
  Sender: FDA-Public Use
  Company Number: US-LUPIN PHARMACEUTICALS INC.-2021-13281

PATIENT
  Sex: Female

DRUGS (2)
  1. POTASSIUM CHLORIDE ER CAPSULES 8 MEQ (600 MG) [Suspect]
     Active Substance: POTASSIUM CHLORIDE
     Dosage: UNK
     Route: 065
     Dates: start: 202107
  2. POTASSIUM CHLORIDE ER CAPSULES 8 MEQ (600 MG) [Suspect]
     Active Substance: POTASSIUM CHLORIDE
     Indication: BLOOD POTASSIUM DECREASED
     Dosage: UNK
     Route: 065

REACTIONS (3)
  - Product quality issue [Unknown]
  - Ill-defined disorder [Unknown]
  - Migraine [Unknown]

NARRATIVE: CASE EVENT DATE: 202107
